FAERS Safety Report 13163287 (Version 1)
Quarter: 2017Q1

REPORT INFORMATION
  Report Type: Spontaneous
  Country: US (occurrence: US)
  Receive Date: 20170129
  Receipt Date: 20170129
  Transmission Date: 20170428
  Serious: Yes (Hospitalization)
  Sender: FDA-Public Use
  Company Number: None

PATIENT
  Age: 45 Year
  Sex: Male
  Weight: 51.75 kg

DRUGS (3)
  1. STRIBILD [Concomitant]
     Active Substance: COBICISTAT\ELVITEGRAVIR\EMTRICITABINE\TENOFOVIR DISOPROXIL FUMARATE
  2. PANTOPRAZOLE [Concomitant]
     Active Substance: PANTOPRAZOLE SODIUM
  3. WALGREENS STERILE SOOTHING EYE WASH [Suspect]
     Active Substance: WATER
     Indication: FOREIGN BODY SENSATION IN EYES
     Dosage: ?          QUANTITY:4 DROP(S);?
     Route: 047
     Dates: start: 20170123, end: 20170123

REACTIONS (7)
  - Visual impairment [None]
  - Lacrimation increased [None]
  - Photophobia [None]
  - Eyelid exfoliation [None]
  - Product quality issue [None]
  - Product formulation issue [None]
  - Eye swelling [None]

NARRATIVE: CASE EVENT DATE: 20170123
